FAERS Safety Report 8595929 (Version 4)
Quarter: 2014Q1

REPORT INFORMATION
  Report Type: Spontaneous
  Country: US (occurrence: US)
  Receive Date: 20120605
  Receipt Date: 20140328
  Transmission Date: 20141002
  Serious: No
  Sender: FDA-Public Use
  Company Number: US-ASTRAZENECA-2012SE35446

PATIENT
  Age: 62 Year
  Sex: Female
  Weight: 83.5 kg

DRUGS (12)
  1. NEXIUM [Suspect]
     Route: 048
     Dates: start: 20100912
  2. NEXIUM [Suspect]
     Dosage: ONCE
     Route: 048
  3. METHYLPREDNISOLONE [Concomitant]
     Dates: start: 20100713
  4. METOCLOPRAMIDE [Concomitant]
     Dates: start: 20100820
  5. NAPROXEN [Concomitant]
     Dates: start: 20110124
  6. PREDNISONE [Concomitant]
     Dates: start: 20100823
  7. DEXILANT [Concomitant]
     Dosage: TAKEN EVERY DAY
  8. TUMS [Concomitant]
     Dosage: TAKEN EVERY DAY
  9. ALKA SELTZER [Concomitant]
     Dosage: TAKEN EVERY DAY
  10. MILK OF MAGNESIA [Concomitant]
     Dosage: TAKEN EVERY DAY
  11. PEPTO BISMOL [Concomitant]
     Dosage: TAKEN EVERY DAY
  12. MYLANTA [Concomitant]
     Dosage: TAKEN EVERY DAY

REACTIONS (8)
  - Osteoporosis [Unknown]
  - Multiple fractures [Unknown]
  - Chronic obstructive pulmonary disease [Unknown]
  - Arthritis [Unknown]
  - Diabetes mellitus [Unknown]
  - Vitamin D deficiency [Unknown]
  - Cardiovascular disorder [Unknown]
  - Gait disturbance [Unknown]
